FAERS Safety Report 7689063-8 (Version None)
Quarter: 2011Q3

REPORT INFORMATION
  Report Type: 
  Country: None (occurrence: None)
  Receive Date: 20110817
  Receipt Date: 20110816
  Transmission Date: 20111222
  Serious: Yes (Hospitalization, Disabling)
  Sender: FDA-Public Use
  Company Number: US-MERCK-1108USA00581

PATIENT
  Age: 67 Year
  Sex: Female

DRUGS (2)
  1. FOSAMAX [Suspect]
     Indication: OSTEOPENIA
     Route: 048
     Dates: start: 20020801, end: 20110703
  2. SINGULAIR [Concomitant]
     Route: 048

REACTIONS (4)
  - FALL [None]
  - LIMB INJURY [None]
  - FEMUR FRACTURE [None]
  - FOOT FRACTURE [None]
